FAERS Safety Report 19984361 (Version 1)
Quarter: 2021Q4

REPORT INFORMATION
  Report Type: Spontaneous
  Country: FR (occurrence: FR)
  Receive Date: 20211021
  Receipt Date: 20211021
  Transmission Date: 20220303
  Serious: Yes (Hospitalization)
  Sender: FDA-Public Use
  Company Number: None

PATIENT
  Age: 31 Year
  Sex: Female
  Weight: 70 kg

DRUGS (1)
  1. TRAMADOL [Suspect]
     Active Substance: TRAMADOL
     Indication: Intervertebral disc protrusion
     Dosage: 325 MILLIGRAM (3 COMPRIM?S PAR JOUR)
     Route: 048
     Dates: start: 20210301, end: 20210319

REACTIONS (4)
  - Rash [Not Recovered/Not Resolved]
  - Gallbladder obstruction [Not Recovered/Not Resolved]
  - Hepatitis [Not Recovered/Not Resolved]
  - Hyperhidrosis [Not Recovered/Not Resolved]

NARRATIVE: CASE EVENT DATE: 20210319
